FAERS Safety Report 12083869 (Version 2)
Quarter: 2017Q2

REPORT INFORMATION
  Report Type: Spontaneous
  Country: DE (occurrence: DE)
  Receive Date: 20160217
  Receipt Date: 20170419
  Transmission Date: 20170829
  Serious: Yes (Other)
  Sender: FDA-Public Use
  Company Number: DE-SUN PHARMACEUTICAL INDUSTRIES LTD-2016R1-111536

PATIENT
  Age: 34 Year
  Sex: Female

DRUGS (2)
  1. ISOTRETINOIN [Suspect]
     Active Substance: ISOTRETINOIN
     Indication: PHOTODERMATOSIS
     Dosage: 10 MG, TID (PER WEEK)
     Route: 048
  2. GLYCOLIC ACID [Suspect]
     Active Substance: GLYCOLIC ACID
     Indication: MICROGRAPHIC SKIN SURGERY
     Dosage: UNK
     Route: 065

REACTIONS (3)
  - Erythema [Recovering/Resolving]
  - Skin hyperpigmentation [Not Recovered/Not Resolved]
  - Scar [Not Recovered/Not Resolved]
